FAERS Safety Report 5871612-3 (Version None)
Quarter: 2008Q3

REPORT INFORMATION
  Report Type: 
  Country: None (occurrence: None)
  Receive Date: 20080905
  Receipt Date: 20080702
  Transmission Date: 20090109
  Serious: No
  Sender: FDA-Public Use
  Company Number: A0736303A

PATIENT
  Sex: Female

DRUGS (5)
  1. REQUIP [Suspect]
     Indication: RESTLESS LEGS SYNDROME
     Route: 048
  2. PAROXETINE HCL [Suspect]
     Indication: DEPRESSION
     Dosage: 20MG PER DAY
     Route: 048
  3. PAROXETINE HCL [Suspect]
     Route: 048
  4. ADVAIR DISKUS 100/50 [Concomitant]
  5. SYNTHROID [Concomitant]

REACTIONS (2)
  - DEPRESSION [None]
  - FATIGUE [None]
